FAERS Safety Report 18529296 (Version 6)
Quarter: 2021Q1

REPORT INFORMATION
  Report Type: Spontaneous
  Country: US (occurrence: US)
  Receive Date: 20201120
  Receipt Date: 20210308
  Transmission Date: 20210419
  Serious: No
  Sender: FDA-Public Use
  Company Number: US-BIOVITRUM-2020US6627

PATIENT
  Age: 10 Month
  Sex: Male
  Weight: 7 kg

DRUGS (11)
  1. SYNAGIS [Suspect]
     Active Substance: PALIVIZUMAB
     Indication: PULMONARY ARTERIAL HYPERTENSION
     Dosage: START DATE UNKNOWN, START DATE BASED ON ACCREDO FIRST SHIP DATE: 12/MAR/2020
     Route: 030
     Dates: start: 20201216
  2. SYNAGIS [Suspect]
     Active Substance: PALIVIZUMAB
     Indication: RASH
  3. SYNAGIS [Suspect]
     Active Substance: PALIVIZUMAB
     Indication: CYTOGENETIC ABNORMALITY
  4. SYNAGIS [Suspect]
     Active Substance: PALIVIZUMAB
     Indication: PREMATURE BABY
  5. SYNAGIS [Suspect]
     Active Substance: PALIVIZUMAB
     Indication: MALABSORPTION
  6. SYNAGIS [Suspect]
     Active Substance: PALIVIZUMAB
     Indication: GASTROOESOPHAGEAL REFLUX DISEASE
  7. SYNAGIS [Suspect]
     Active Substance: PALIVIZUMAB
     Indication: CONGENITAL DIAPHRAGMATIC HERNIA
  8. SYNAGIS [Suspect]
     Active Substance: PALIVIZUMAB
     Indication: PYREXIA
  9. SYNAGIS [Suspect]
     Active Substance: PALIVIZUMAB
     Indication: RASH
  10. SYNAGIS [Suspect]
     Active Substance: PALIVIZUMAB
     Indication: CONGENITAL PULMONARY VALVE ATRESIA
  11. SYNAGIS [Suspect]
     Active Substance: PALIVIZUMAB
     Indication: IMMUNISATION

REACTIONS (3)
  - Illness [Unknown]
  - Intentional overdose [Unknown]
  - Weight decreased [Unknown]

NARRATIVE: CASE EVENT DATE: 20201216
